FAERS Safety Report 8953545 (Version 2)
Quarter: 2013Q1

REPORT INFORMATION
  Report Type: Spontaneous
  Country: US (occurrence: US)
  Receive Date: 20121206
  Receipt Date: 20130122
  Transmission Date: 20140127
  Serious: No
  Sender: FDA-Public Use
  Company Number: US-PFIZER INC-2012300571

PATIENT
  Age: 76 Year
  Sex: Female
  Weight: 52 kg

DRUGS (2)
  1. XALATAN [Suspect]
     Indication: INTRAOCULAR PRESSURE INCREASED
     Dosage: 1 GTT EACH EYE, 1X/DAY
     Route: 047
     Dates: start: 1997
  2. XALATAN [Suspect]
     Dosage: UNK

REACTIONS (2)
  - Eye irritation [Recovering/Resolving]
  - Product quality issue [Recovering/Resolving]
